FAERS Safety Report 10675806 (Version 1)
Quarter: 2014Q4

REPORT INFORMATION
  Report Type: Spontaneous
  Country: CA (occurrence: CA)
  Receive Date: 20141225
  Receipt Date: 20141225
  Transmission Date: 20150529
  Serious: Yes (Other)
  Sender: FDA-Public Use
  Company Number: CA-ROCHE-1511871

PATIENT
  Sex: Female

DRUGS (6)
  1. RITUXAN [Suspect]
     Active Substance: RITUXIMAB
     Indication: MANTLE CELL LYMPHOMA
     Dosage: DOSAGE UNKNOWN
     Route: 042
     Dates: start: 200705, end: 2010
  2. SPIRONOLACTONE. [Concomitant]
     Active Substance: SPIRONOLACTONE
  3. INDOMETHACIN. [Concomitant]
     Active Substance: INDOMETHACIN
  4. RITUXAN [Suspect]
     Active Substance: RITUXIMAB
     Dosage: DOSAGE UNKNOWN
     Route: 042
     Dates: start: 20140619
  5. VESICARE [Concomitant]
     Active Substance: SOLIFENACIN SUCCINATE
  6. BENDAMUSTINE [Concomitant]
     Active Substance: BENDAMUSTINE

REACTIONS (5)
  - Lymphoma [Unknown]
  - Ascites [Unknown]
  - Micturition urgency [Unknown]
  - Intestinal perforation [Recovered/Resolved]
  - Pollakiuria [Unknown]

NARRATIVE: CASE EVENT DATE: 2013
